FAERS Safety Report 21732933 (Version 1)
Quarter: 2022Q4

REPORT INFORMATION
  Report Type: Spontaneous
  Country: US (occurrence: US)
  Receive Date: 20221215
  Receipt Date: 20221215
  Transmission Date: 20230112
  Serious: No
  Sender: FDA-Public Use
  Company Number: US-INCYTE CORPORATION-2022IN011907

PATIENT

DRUGS (1)
  1. JAKAFI [Suspect]
     Active Substance: RUXOLITINIB
     Indication: Primary immunodeficiency syndrome
     Dosage: 2.5 MILLIGRAM, QD, TAKING A HALF TABLET ONCE A DAY, FOR A DOSAGE OF 2.5MG
     Route: 065

REACTIONS (3)
  - Fatigue [Unknown]
  - Wrong technique in product usage process [Unknown]
  - Off label use [Unknown]
